FAERS Safety Report 15035848 (Version 1)
Quarter: 2018Q2

REPORT INFORMATION
  Report Type: Spontaneous
  Country: GB (occurrence: GB)
  Receive Date: 20180620
  Receipt Date: 20180620
  Transmission Date: 20180711
  Serious: Yes (Life-Threatening, Hospitalization, Other)
  Sender: FDA-Public Use
  Company Number: PHHY2017GB026860

PATIENT
  Age: 23 Year
  Sex: Female

DRUGS (5)
  1. PARACETAMOL [Suspect]
     Active Substance: ACETAMINOPHEN
     Indication: PRODUCT USED FOR UNKNOWN INDICATION
     Dosage: 47.5 G, UNK
     Route: 048
  2. CODEINE PHOSPHATE [Suspect]
     Active Substance: CODEINE PHOSPHATE
     Indication: PRODUCT USED FOR UNKNOWN INDICATION
     Route: 065
  3. IBUPROFEN. [Suspect]
     Active Substance: IBUPROFEN
     Route: 065
  4. IBUPROFEN. [Suspect]
     Active Substance: IBUPROFEN
     Indication: PRODUCT USED FOR UNKNOWN INDICATION
  5. IBUPROFEN. [Suspect]
     Active Substance: IBUPROFEN
     Indication: SUICIDAL IDEATION

REACTIONS (13)
  - Overdose [Recovered/Resolved]
  - Toxicity to various agents [Recovered/Resolved]
  - Activated partial thromboplastin time prolonged [Recovered/Resolved]
  - Alanine aminotransferase increased [Recovered/Resolved]
  - Mitochondrial toxicity [Recovered/Resolved]
  - Liver injury [Recovering/Resolving]
  - Poisoning [Recovered/Resolved]
  - Suicidal ideation [Unknown]
  - Confusional state [Recovered/Resolved]
  - Prothrombin time prolonged [Recovered/Resolved]
  - Consciousness fluctuating [Recovered/Resolved]
  - Lactic acidosis [Recovered/Resolved]
  - Somnolence [Recovered/Resolved]
